FAERS Safety Report 9046923 (Version 2)
Quarter: 2013Q1

REPORT INFORMATION
  Report Type: Spontaneous
  Country: NL (occurrence: NL)
  Receive Date: 20130204
  Receipt Date: 20130208
  Transmission Date: 20140127
  Serious: Yes (Death)
  Sender: FDA-Public Use
  Company Number: NL-JNJFOC-20130113731

PATIENT
  Age: 69 None
  Sex: Female

DRUGS (2)
  1. REMICADE [Suspect]
     Indication: RHEUMATOID ARTHRITIS
     Route: 042
     Dates: start: 20061011, end: 20120426
  2. METHOTREXATE [Concomitant]
     Dosage: 2.5MG
     Route: 065
     Dates: start: 199901, end: 200404

REACTIONS (2)
  - Gastrooesophageal cancer [Fatal]
  - Breast cancer [Fatal]
